FAERS Safety Report 4532965-1 (Version None)
Quarter: 2004Q4

REPORT INFORMATION
  Report Type: 
  Country: None (occurrence: None)
  Receive Date: 20041206
  Receipt Date: 20041008
  Transmission Date: 20050328
  Serious: No
  Sender: FDA-Public Use
  Company Number: USA041080680

PATIENT
  Age: 79 Year
  Sex: Female

DRUGS (4)
  1. CYMBALTA [Suspect]
     Indication: DEPRESSION
     Dosage: 30 MG
     Dates: start: 20041001
  2. EVISTA [Suspect]
  3. ATIVAN [Concomitant]
  4. MULTIVITAMIN [Concomitant]

REACTIONS (1)
  - MUSCLE CRAMP [None]
